FAERS Safety Report 10684852 (Version 2)
Quarter: 2015Q2

REPORT INFORMATION
  Report Type: Spontaneous
  Country: US (occurrence: US)
  Receive Date: 20141231
  Receipt Date: 20150520
  Transmission Date: 20150821
  Serious: Yes (Hospitalization)
  Sender: FDA-Public Use
  Company Number: US-JNJFOC-20141218209

PATIENT
  Age: 44 Year
  Sex: Female

DRUGS (1)
  1. XARELTO [Suspect]
     Active Substance: RIVAROXABAN
     Indication: DEEP VEIN THROMBOSIS
     Route: 048
     Dates: start: 201307, end: 201308

REACTIONS (2)
  - Uterine haemorrhage [Unknown]
  - Menorrhagia [Unknown]

NARRATIVE: CASE EVENT DATE: 201308
